FAERS Safety Report 5315935-5 (Version None)
Quarter: 2007Q2

REPORT INFORMATION
  Report Type: 
  Country: None (occurrence: None)
  Receive Date: 20070503
  Receipt Date: 20070419
  Transmission Date: 20071010
  Serious: Yes (Life-Threatening)
  Sender: FDA-Public Use
  Company Number: JP-ROCHE-433744

PATIENT
  Age: 12 Year
  Sex: Male
  Weight: 31 kg

DRUGS (4)
  1. TAMIFLU [Suspect]
     Route: 048
     Dates: start: 20060119, end: 20060119
  2. MEDICON [Concomitant]
     Route: 048
     Dates: start: 20060119, end: 20060123
  3. NIPOLAZIN [Concomitant]
     Route: 048
     Dates: start: 20060119, end: 20060123
  4. BIOFERMIN [Concomitant]
     Route: 048
     Dates: start: 20060119, end: 20060123

REACTIONS (1)
  - ABNORMAL BEHAVIOUR [None]
